FAERS Safety Report 7471612-6 (Version None)
Quarter: 2011Q2

REPORT INFORMATION
  Report Type: 
  Country: None (occurrence: None)
  Receive Date: 20110502
  Receipt Date: 20110419
  Transmission Date: 20111010
  Serious: Yes (Other)
  Sender: FDA-Public Use
  Company Number: 2011P1006073

PATIENT
  Age: 77 Year
  Sex: Female
  Weight: 79.3795 kg

DRUGS (6)
  1. LAMOTRIGINE [Suspect]
     Indication: DEPRESSION
     Dosage: 150 MG;QD;PO   75 MG;QD;PO
     Route: 048
     Dates: start: 20080101, end: 20100101
  2. LAMOTRIGINE [Suspect]
     Indication: BIPOLAR DISORDER
     Dosage: 150 MG;QD;PO   75 MG;QD;PO
     Route: 048
     Dates: start: 20080101, end: 20100101
  3. LAMOTRIGINE [Suspect]
     Indication: DEPRESSION
     Dosage: 150 MG;QD;PO   75 MG;QD;PO
     Route: 048
     Dates: start: 20100101
  4. LAMOTRIGINE [Suspect]
     Indication: BIPOLAR DISORDER
     Dosage: 150 MG;QD;PO   75 MG;QD;PO
     Route: 048
     Dates: start: 20100101
  5. SYNTHROID [Concomitant]
  6. PRINIVIL [Concomitant]

REACTIONS (2)
  - ANAL CANCER [None]
  - DYSPEPSIA [None]
